FAERS Safety Report 9753329 (Version 1)
Quarter: 2013Q4

REPORT INFORMATION
  Report Type: Spontaneous
  Country: US (occurrence: US)
  Receive Date: 20131213
  Receipt Date: 20131213
  Transmission Date: 20140711
  Serious: Yes (Other)
  Sender: FDA-Public Use
  Company Number: US-TEVA-403167USA

PATIENT
  Age: 33 Year
  Sex: Female
  Weight: 55.39 kg

DRUGS (3)
  1. PARAGARD 380A [Suspect]
     Indication: CONTRACEPTION
     Route: 015
  2. ADVAIR [Concomitant]
     Indication: ASTHMA
  3. ALBUTEROL [Concomitant]
     Indication: ASTHMA

REACTIONS (3)
  - Device dislocation [Recovered/Resolved]
  - Device dislocation [Recovered/Resolved]
  - Discomfort [Recovered/Resolved]
